FAERS Safety Report 12242248 (Version 3)
Quarter: 2016Q3

REPORT INFORMATION
  Report Type: Spontaneous
  Country: US (occurrence: US)
  Receive Date: 20160406
  Receipt Date: 20160712
  Transmission Date: 20161109
  Serious: Yes (Death)
  Sender: FDA-Public Use
  Company Number: US-JNJFOC-20160403412

PATIENT
  Sex: Female

DRUGS (4)
  1. XARELTO [Suspect]
     Active Substance: RIVAROXABAN
     Indication: PULMONARY EMBOLISM
     Dosage: 15 MG BID 3 WEEKS
     Route: 048
     Dates: start: 20160109, end: 2016
  2. XARELTO [Suspect]
     Active Substance: RIVAROXABAN
     Indication: DEEP VEIN THROMBOSIS
     Dosage: 20 MG DAILY
     Route: 048
     Dates: start: 2016
  3. XARELTO [Suspect]
     Active Substance: RIVAROXABAN
     Indication: PULMONARY EMBOLISM
     Dosage: 20 MG DAILY
     Route: 048
     Dates: start: 2016
  4. XARELTO [Suspect]
     Active Substance: RIVAROXABAN
     Indication: DEEP VEIN THROMBOSIS
     Dosage: 15 MG BID 3 WEEKS
     Route: 048
     Dates: start: 20160109, end: 2016

REACTIONS (2)
  - Pulmonary embolism [Fatal]
  - Cardiac arrest [Fatal]
